FAERS Safety Report 5047050-2 (Version None)
Quarter: 2006Q3

REPORT INFORMATION
  Report Type: 
  Country: None (occurrence: None)
  Receive Date: 20060703
  Receipt Date: 20060620
  Transmission Date: 20061208
  Serious: Yes (Other)
  Sender: FDA-Public Use
  Company Number: 2006078625

PATIENT
  Sex: Female
  Weight: 70.3075 kg

DRUGS (13)
  1. NEURONTIN [Suspect]
     Indication: PAIN IN EXTREMITY
     Dosage: 1800 MG (600 MG, 3 IN 1 D)
     Dates: end: 20060601
  2. INSULIN [Suspect]
     Indication: DIABETES MELLITUS
     Dates: end: 20050101
  3. HUMULIN (INSULIN HUMAN, INSULIN ISOPHANE, HUMAN BIOSYNTHETIC) [Suspect]
     Indication: DIABETES MELLITUS
     Dates: start: 20050101
  4. MOBIC [Suspect]
     Indication: ARTHRITIS
     Dates: start: 20060101, end: 20060601
  5. AVANDAMET [Suspect]
     Indication: DIABETES MELLITUS
     Dosage: 2000 MG (1000 MG, 2 IN 1 D)
  6. EVISTA [Concomitant]
  7. IRON (IRON) [Concomitant]
  8. CALCIUM (CALCIUM) [Concomitant]
  9. LASIX [Concomitant]
  10. BENAZEPRIL (BENAZEPRIL) [Concomitant]
  11. COREG [Concomitant]
  12. ZANTAC [Concomitant]
  13. IMDUR [Concomitant]

REACTIONS (9)
  - ARTHRITIS [None]
  - BLOOD GLUCOSE DECREASED [None]
  - BLOOD GLUCOSE INCREASED [None]
  - CARDIAC DISORDER [None]
  - FATIGUE [None]
  - LOSS OF CONSCIOUSNESS [None]
  - OEDEMA PERIPHERAL [None]
  - PAIN IN EXTREMITY [None]
  - THERAPY REGIMEN CHANGED [None]
